FAERS Safety Report 19355630 (Version 1)
Quarter: 2021Q2

REPORT INFORMATION
  Report Type: Spontaneous
  Country: US (occurrence: US)
  Receive Date: 20210601
  Receipt Date: 20210601
  Transmission Date: 20210717
  Serious: No
  Sender: FDA-Public Use
  Company Number: US-ENCUBE-000069

PATIENT
  Sex: Female

DRUGS (1)
  1. DICLOFENAC SODIUM TOPICAL GEL 1% [Suspect]
     Active Substance: DICLOFENAC SODIUM
     Indication: ARTHRALGIA
     Dosage: 3?TIMES FOR 9 DAYS
     Route: 061
     Dates: start: 20210417

REACTIONS (2)
  - Rash macular [Recovering/Resolving]
  - Pruritus [Recovered/Resolved]

NARRATIVE: CASE EVENT DATE: 20210426
